FAERS Safety Report 18725258 (Version 1)
Quarter: 2021Q1

REPORT INFORMATION
  Report Type: Report from Study
  Country: MX (occurrence: MX)
  Receive Date: 20210111
  Receipt Date: 20210111
  Transmission Date: 20210419
  Serious: Yes (Other)
  Sender: FDA-Public Use
  Company Number: PHHY2019MX060013

PATIENT
  Age: 55 Year
  Sex: Female
  Weight: 75 kg

DRUGS (3)
  1. EXFORGE HCT [Suspect]
     Active Substance: AMLODIPINE BESYLATE\HYDROCHLOROTHIAZIDE\VALSARTAN
     Indication: BLOOD PRESSURE INCREASED
     Dosage: 1 DF, QD (STARTED 6 TO 7 YEARS AGO)
     Route: 048
  2. METOPROLOL. [Concomitant]
     Active Substance: METOPROLOL
     Indication: HYPERTENSION
     Dosage: 0.5 DF (100 MG), QD (8 YEARS AGO)
     Route: 048
  3. EXFORGE HCT [Suspect]
     Active Substance: AMLODIPINE BESYLATE\HYDROCHLOROTHIAZIDE\VALSARTAN
     Indication: HYPERTENSION
     Dosage: 1 DF, QD 1/2 INTHE MORNING 1/2 IN THE NIGHT
     Route: 048
     Dates: start: 20190212

REACTIONS (10)
  - Eye pain [Not Recovered/Not Resolved]
  - Product prescribing error [Not Recovered/Not Resolved]
  - Deafness [Recovered/Resolved]
  - Pharyngitis [Recovered/Resolved]
  - Wrong technique in product usage process [Not Recovered/Not Resolved]
  - Suffocation feeling [Not Recovered/Not Resolved]
  - Ear infection [Recovered/Resolved]
  - Feeling abnormal [Recovering/Resolving]
  - Osteopenia [Unknown]
  - Speech disorder [Unknown]

NARRATIVE: CASE EVENT DATE: 20190212
